FAERS Safety Report 14449093 (Version 3)
Quarter: 2018Q2

REPORT INFORMATION
  Report Type: Spontaneous
  Country: US (occurrence: US)
  Receive Date: 20180126
  Receipt Date: 20180427
  Transmission Date: 20180711
  Serious: No
  Sender: FDA-Public Use
  Company Number: US-009507513-1801USA010888

PATIENT
  Age: 30 Year
  Sex: Female
  Weight: 163.72 kg

DRUGS (2)
  1. NEXPLANON [Suspect]
     Active Substance: ETONOGESTREL
     Dosage: 1 DF, UNK
     Route: 059
     Dates: start: 20180111, end: 20180111
  2. NEXPLANON [Suspect]
     Active Substance: ETONOGESTREL
     Dosage: 1 DF, UNK
     Route: 059
     Dates: start: 20180111

REACTIONS (5)
  - No adverse event [Unknown]
  - Device deployment issue [Recovered/Resolved]
  - Device expulsion [Recovered/Resolved]
  - Complication of device insertion [Recovered/Resolved]
  - Product quality issue [Unknown]

NARRATIVE: CASE EVENT DATE: 20180111
